FAERS Safety Report 9354037 (Version 1)
Quarter: 2013Q2

REPORT INFORMATION
  Report Type: Spontaneous
  Country: US (occurrence: US)
  Receive Date: 20130618
  Receipt Date: 20130618
  Transmission Date: 20140414
  Serious: No
  Sender: FDA-Public Use
  Company Number: US-TEVA-316689USA

PATIENT
  Sex: 0
  Weight: 57.66 kg

DRUGS (8)
  1. FENTANYL [Suspect]
     Indication: HEADACHE
     Dosage: 1-2 LOZENGES/MONTH
     Route: 002
     Dates: end: 2011
  2. FENTANYL [Suspect]
     Route: 002
     Dates: start: 2011
  3. OXYCODONE [Concomitant]
     Indication: HEADACHE
     Route: 048
     Dates: start: 2007
  4. DICLOFENAC [Concomitant]
     Indication: HEADACHE
     Route: 048
  5. DIAZEPAM [Concomitant]
     Indication: HEADACHE
     Route: 048
  6. PREDNISONE [Concomitant]
     Indication: HEADACHE
     Dosage: ONCE DAILY
     Route: 048
     Dates: start: 201110
  7. LORAZEPAM [Concomitant]
     Indication: HEADACHE
     Route: 048
  8. DISOPYRAMIDE [Concomitant]
     Indication: GASTROINTESTINAL PAIN
     Route: 048

REACTIONS (2)
  - Headache [Recovered/Resolved]
  - Drug tolerance [Recovered/Resolved]
